FAERS Safety Report 23582742 (Version 1)
Quarter: 2024Q1

REPORT INFORMATION
  Report Type: Spontaneous
  Country: US (occurrence: None)
  Receive Date: 20240229
  Receipt Date: 20240229
  Transmission Date: 20240410
  Serious: Yes (Other)
  Sender: FDA-Public Use
  Company Number: US-SUPERNUS Pharmaceuticals, Inc.-SUP202402-000614

PATIENT
  Age: 7 Year

DRUGS (1)
  1. QELBREE [Suspect]
     Active Substance: VILOXAZINE HYDROCHLORIDE
     Indication: Product used for unknown indication
     Dosage: 100 MG FOR 5 OR 6 DAYS

REACTIONS (2)
  - Homicidal ideation [Unknown]
  - Suicidal ideation [Unknown]
